FAERS Safety Report 4474850-X (Version None)
Quarter: 2004Q4

REPORT INFORMATION
  Report Type: 
  Country: None (occurrence: None)
  Receive Date: 20041012
  Receipt Date: 20040923
  Transmission Date: 20050328
  Serious: Yes (Death, Hospitalization)
  Sender: FDA-Public Use
  Company Number: DSA_25036_2004

PATIENT

DRUGS (2)
  1. ATIVAN [Suspect]
  2. TAZOCIN [Suspect]
     Dates: end: 20040902

REACTIONS (3)
  - EOSINOPHILIA [None]
  - HYPERTHERMIA [None]
  - LARYNGEAL OEDEMA [None]
